FAERS Safety Report 14938269 (Version 5)
Quarter: 2022Q3

REPORT INFORMATION
  Report Type: Spontaneous
  Country: US (occurrence: None)
  Receive Date: 20180525
  Receipt Date: 20220706
  Transmission Date: 20221027
  Serious: Yes (Other)
  Sender: FDA-Public Use
  Company Number: 2018SE66589

PATIENT
  Age: 870 Month
  Sex: Female
  Weight: 108.4 kg

DRUGS (37)
  1. NEXIUM [Suspect]
     Active Substance: ESOMEPRAZOLE MAGNESIUM
     Indication: Gastrooesophageal reflux disease
     Route: 048
     Dates: start: 2003, end: 2007
  2. NEXIUM [Suspect]
     Active Substance: ESOMEPRAZOLE MAGNESIUM
     Indication: Gastrooesophageal reflux disease
     Route: 048
     Dates: start: 200307
  3. NEXIUM [Suspect]
     Active Substance: ESOMEPRAZOLE MAGNESIUM
     Indication: Gastrooesophageal reflux disease
     Route: 048
     Dates: start: 20030702
  4. OMEPRAZOLE [Suspect]
     Active Substance: OMEPRAZOLE
     Indication: Gastrooesophageal reflux disease
     Dosage: GENERIC- 20MG ONCE A DAY
     Route: 065
     Dates: start: 201702
  5. PRILOSEC OTC [Suspect]
     Active Substance: OMEPRAZOLE MAGNESIUM
     Indication: Gastrooesophageal reflux disease
     Route: 048
     Dates: start: 2003, end: 2007
  6. PRILOSEC OTC [Suspect]
     Active Substance: OMEPRAZOLE MAGNESIUM
     Indication: Gastrooesophageal reflux disease
     Route: 048
     Dates: start: 200602, end: 200706
  7. PRILOSEC OTC [Suspect]
     Active Substance: OMEPRAZOLE MAGNESIUM
     Indication: Gastrooesophageal reflux disease
     Route: 048
     Dates: start: 20060227
  8. ZESTRIL/LISINOPRIL [Concomitant]
     Indication: Hypertension
     Dates: start: 200108, end: 200204
  9. ZESTRIL/LISINOPRIL [Concomitant]
     Indication: Hypertension
     Dates: start: 200210, end: 200703
  10. RISPERDAL [Concomitant]
     Active Substance: RISPERIDONE
     Dates: start: 200108, end: 200209
  11. ZYPREXA [Concomitant]
     Active Substance: OLANZAPINE
     Dates: start: 200110, end: 200305
  12. ZOLOFT [Concomitant]
     Active Substance: SERTRALINE HYDROCHLORIDE
     Indication: Anxiety
     Dates: start: 200112, end: 200703
  13. HALDOL [Concomitant]
     Active Substance: HALOPERIDOL
     Dates: start: 200307, end: 200308
  14. TYLENOL [Concomitant]
     Active Substance: ACETAMINOPHEN
     Indication: Back pain
     Dates: start: 201804
  15. ZANTAC 150 OTC [Concomitant]
     Dates: start: 2011, end: 2017
  16. BUPROPION [Concomitant]
     Active Substance: BUPROPION
     Dates: start: 20150825
  17. METOPROLOL [Concomitant]
     Active Substance: METOPROLOL
  18. PRAVASTATIN [Concomitant]
     Active Substance: PRAVASTATIN
  19. APAP/CODEIN [Concomitant]
     Dates: start: 20151109
  20. LOMOTIL [Concomitant]
     Active Substance: ATROPINE SULFATE\DIPHENOXYLATE HYDROCHLORIDE
  21. DUONEB [Concomitant]
     Active Substance: ALBUTEROL SULFATE\IPRATROPIUM BROMIDE
  22. WELLBUTRIN [Concomitant]
     Active Substance: BUPROPION HYDROCHLORIDE
  23. PEPCID [Concomitant]
     Active Substance: FAMOTIDINE
  24. ZESTORETIC [Concomitant]
     Active Substance: HYDROCHLOROTHIAZIDE\LISINOPRIL
  25. MOBIC [Concomitant]
     Active Substance: MELOXICAM
  26. TORADOL [Concomitant]
     Active Substance: KETOROLAC TROMETHAMINE
  27. LISINOPRIL [Concomitant]
     Active Substance: LISINOPRIL
  28. COMBIGAN [Concomitant]
     Active Substance: BRIMONIDINE TARTRATE\TIMOLOL MALEATE
  29. MECLIZINE [Concomitant]
     Active Substance: MECLIZINE HYDROCHLORIDE
  30. DORZOLAMIDE [Concomitant]
     Active Substance: DORZOLAMIDE
  31. TIZANIDINE [Concomitant]
     Active Substance: TIZANIDINE
  32. MELOXICAM [Concomitant]
     Active Substance: MELOXICAM
  33. FAMOTIDINE [Concomitant]
     Active Substance: FAMOTIDINE
  34. COGENTIN [Concomitant]
     Active Substance: BENZTROPINE MESYLATE
  35. PRAVACHOL [Concomitant]
     Active Substance: PRAVASTATIN SODIUM
  36. COREG [Concomitant]
     Active Substance: CARVEDILOL
  37. ANTIVERT [Concomitant]
     Active Substance: MECLIZINE HYDROCHLORIDE

REACTIONS (5)
  - Chronic kidney disease [Not Recovered/Not Resolved]
  - Acute kidney injury [Unknown]
  - Renal impairment [Unknown]
  - Hyperparathyroidism secondary [Unknown]
  - Nephrogenic anaemia [Unknown]
